FAERS Safety Report 4264770-8 (Version None)
Quarter: 2004Q1

REPORT INFORMATION
  Report Type: 
  Country: None (occurrence: None)
  Receive Date: 20040102
  Receipt Date: 20031217
  Transmission Date: 20041129
  Serious: Yes (Death, Other)
  Sender: FDA-Public Use
  Company Number: US_020786006

PATIENT
  Age: 79 Year
  Sex: Male
  Weight: 54 kg

DRUGS (3)
  1. GEMCITABINE HYDROCHLORIDE-IV (GEMCITABINE) [Suspect]
     Indication: NON-SMALL CELL LUNG CANCER
     Dosage: 1200 MG/OTHER
     Route: 050
     Dates: start: 20011022, end: 20011029
  2. NAVELBINE [Concomitant]
  3. NASEA (NASEA) [Concomitant]

REACTIONS (8)
  - ANAEMIA [None]
  - C-REACTIVE PROTEIN INCREASED [None]
  - CONDITION AGGRAVATED [None]
  - DISSEMINATED INTRAVASCULAR COAGULATION [None]
  - HAEMOPTYSIS [None]
  - NEUTROPHIL COUNT DECREASED [None]
  - PYREXIA [None]
  - WHITE BLOOD CELL COUNT DECREASED [None]
